FAERS Safety Report 8121128-9 (Version None)
Quarter: 2012Q1

REPORT INFORMATION
  Report Type: 
  Country: None (occurrence: None)
  Receive Date: 20120203
  Receipt Date: 20120131
  Transmission Date: 20120608
  Serious: Yes (Other)
  Sender: FDA-Public Use
  Company Number: 1000023904

PATIENT
  Age: 74 Year
  Sex: Male

DRUGS (7)
  1. ARICEPT [Suspect]
     Indication: DEMENTIA ALZHEIMER'S TYPE
     Dosage: 5 MG (5 MG, 1 IN 1 D), ORAL
     Route: 048
     Dates: start: 20110131, end: 20110811
  2. LYRICA [Suspect]
     Indication: PAIN
     Dosage: 300 MG (150 MG, 2 IN 1 D), ORAL
     Route: 048
     Dates: start: 20110801, end: 20110811
  3. METHYCOBAL (MECOBALAMIN) (MECOBALAMIN) [Concomitant]
  4. MEMANTINE HYDROCHLORIDE [Suspect]
     Indication: DEMENTIA ALZHEIMER'S TYPE
     Dosage: 5 MG (5 MG, 1 IN 1 D), ORAL
     Route: 048
     Dates: start: 20110621, end: 20110627
  5. MEMANTINE HYDROCHLORIDE [Suspect]
     Indication: DEMENTIA ALZHEIMER'S TYPE
     Dosage: 20 MG (20 MG, 1 IN 1 D), ORAL
     Route: 048
     Dates: start: 20110712, end: 20110811
  6. GRAMALIL (TIAPRIDE HYDROCHLORIDE) [Suspect]
     Indication: DEMENTIA ALZHEIMER'S TYPE
     Dosage: 25 MG (25 MG, 1 IN 1 D), ORAL
     Route: 048
     Dates: start: 20110425, end: 20110811
  7. YOKU-KAN-SAN (ERBAL EXTRACT) [Concomitant]

REACTIONS (4)
  - RHABDOMYOLYSIS [None]
  - REFUSAL OF TREATMENT BY PATIENT [None]
  - ANAEMIA MACROCYTIC [None]
  - NEURALGIA [None]
